FAERS Safety Report 9432871 (Version 1)
Quarter: 2013Q3

REPORT INFORMATION
  Report Type: Spontaneous
  Country: US (occurrence: US)
  Receive Date: 20130731
  Receipt Date: 20130731
  Transmission Date: 20140515
  Serious: Yes (Other)
  Sender: FDA-Public Use
  Company Number: GXBR2013US001452

PATIENT
  Sex: Male

DRUGS (2)
  1. CHLORPROMAZINE HCL [Suspect]
     Dosage: UNK MG, UNK
  2. CARBAMAZEPINE [Suspect]
     Dosage: UNK MG, UNK

REACTIONS (1)
  - Convulsion [Unknown]
